FAERS Safety Report 8031290 (Version 2)
Quarter: 2013Q2

REPORT INFORMATION
  Report Type: Spontaneous
  Country: US (occurrence: None)
  Receive Date: 20110603
  Receipt Date: 20120604
  Transmission Date: 20140414
  Serious: Yes (Disabling, Other)
  Sender: FDA-Public Use
  Company Number: CTI_01311_2011

PATIENT
  Age: 40 Year
  Sex: Female

DRUGS (2)
  1. FACTIVE [Suspect]
     Indication: SINUSITIS
     Dosage: (DF)
     Route: 048
     Dates: start: 20110124
  2. DECADRON /00016001/ [Concomitant]

REACTIONS (2)
  - ANAPHYLACTIC REACTION [None]
  - RASH GENERALISED [None]
